FAERS Safety Report 6683314-4 (Version None)
Quarter: 2010Q2

REPORT INFORMATION
  Report Type: 
  Country: None (occurrence: None)
  Receive Date: 20100415
  Receipt Date: 20100401
  Transmission Date: 20101027
  Serious: Yes (Other)
  Sender: FDA-Public Use
  Company Number: PHEH2008US03557

PATIENT
  Sex: Female

DRUGS (12)
  1. ZOMETA [Suspect]
     Dosage: UNK
     Dates: start: 20021001
  2. AREDIA [Suspect]
     Dosage: 90 MG, UNK
     Route: 042
     Dates: start: 20021001
  3. DECADRON [Concomitant]
     Dosage: UNK
     Dates: start: 20021001, end: 20030101
  4. RELAFEN [Concomitant]
     Dosage: UNK
  5. PREMARIN [Concomitant]
  6. DILAUDID [Concomitant]
  7. ZOLOFT [Concomitant]
  8. XANAX [Concomitant]
  9. TOPROL-XL [Concomitant]
  10. EFFEXOR [Concomitant]
  11. TRAZODONE [Concomitant]
     Dosage: 50 MG, UNK
     Route: 048
     Dates: start: 20030603
  12. MIRTAZAPINE [Concomitant]
     Dosage: 15 MG, UNK
     Route: 048
     Dates: start: 20030603

REACTIONS (22)
  - ACUTE MYOCARDIAL INFARCTION [None]
  - ANXIETY [None]
  - ATRIOVENTRICULAR BLOCK FIRST DEGREE [None]
  - BACK PAIN [None]
  - BLOOD PARATHYROID HORMONE INCREASED [None]
  - CENTRAL VENOUS CATHETERISATION [None]
  - DEFORMITY [None]
  - DRUG DEPENDENCE [None]
  - DRUG HYPERSENSITIVITY [None]
  - DYSPNOEA [None]
  - ELECTROCARDIOGRAM ST-T SEGMENT ABNORMAL [None]
  - ENDOTRACHEAL INTUBATION [None]
  - HOT FLUSH [None]
  - HYPERCALCAEMIA [None]
  - INFECTION [None]
  - JOINT STIFFNESS [None]
  - LYMPHADENOPATHY [None]
  - MENSTRUAL DISORDER [None]
  - OSTEONECROSIS [None]
  - PAIN [None]
  - PALPITATIONS [None]
  - SPINAL OSTEOARTHRITIS [None]
